FAERS Safety Report 11465464 (Version 2)
Quarter: 2015Q3

REPORT INFORMATION
  Report Type: Spontaneous
  Country: US (occurrence: US)
  Receive Date: 20150907
  Receipt Date: 20150921
  Transmission Date: 20151125
  Serious: Yes (Death, Life-Threatening)
  Sender: FDA-Public Use
  Company Number: US-HOSPIRA-2997996

PATIENT
  Sex: Female

DRUGS (8)
  1. MORPHINE SULPHATE [Suspect]
     Active Substance: MORPHINE SULFATE
     Indication: PAIN MANAGEMENT
     Route: 041
     Dates: start: 20150818
  2. MORPHINE SULPHATE [Suspect]
     Active Substance: MORPHINE SULFATE
     Indication: PAIN MANAGEMENT
     Dosage: SHIFT TOTAL OF 4.5MG WAS CLEARED, THE DELIVERY STARTED AND A 1MG PT INITIATED PCA DELIVERY OCCURRED
     Route: 041
     Dates: start: 20150819
  3. MORPHINE SULPHATE [Suspect]
     Active Substance: MORPHINE SULFATE
     Indication: PAIN MANAGEMENT
     Dosage: 2.3MG PCA DOSE, A 20MINUTE PCA LOCKOUT, A 0.9MG/HR CONTINUOUS RATE
     Route: 041
     Dates: start: 20150819
  4. MORPHINE SULPHATE [Suspect]
     Active Substance: MORPHINE SULFATE
     Indication: PAIN MANAGEMENT
     Dosage: THERE WERE THREE 1MG PATIENT INITIATED PCA DELIVERIES AND A SHIFT TOTAL OF 7.4MG WAS CLEARED
     Route: 041
     Dates: start: 20150819
  5. MORPHINE SULPHATE [Suspect]
     Active Substance: MORPHINE SULFATE
     Indication: PAIN MANAGEMENT
     Dosage: 1MG PCA DOSE, WITH A 30MINUTE PCA LOCKOUT
     Route: 041
     Dates: start: 20150819
  6. MORPHINE SULPHATE [Suspect]
     Active Substance: MORPHINE SULFATE
     Indication: PAIN MANAGEMENT
     Dosage: THERE WERE TWO 1MG PATIENT INITIATED PCA DELIVERIES
     Route: 041
     Dates: start: 20150819
  7. MORPHINE SULPHATE [Suspect]
     Active Substance: MORPHINE SULFATE
     Indication: PAIN MANAGEMENT
     Dosage: FIVE 1MG PATIENT INITIATED PCA DELIVERIES AND A SHIFT TOTAL OF 8.2MG WAS CLEARED
     Route: 041
     Dates: start: 20150819
  8. MORPHINE SULPHATE [Suspect]
     Active Substance: MORPHINE SULFATE
     Indication: PAIN MANAGEMENT
     Dosage: A 1MG PATIENT INITIATED PCA DELIVERY OCCURRED
     Route: 041
     Dates: start: 20150819

REACTIONS (5)
  - Unresponsive to stimuli [Unknown]
  - Pulse absent [Recovered/Resolved]
  - Death [Fatal]
  - Dyskinesia [Unknown]
  - Intentional medical device removal by patient [Unknown]

NARRATIVE: CASE EVENT DATE: 20150819
